FAERS Safety Report 19466699 (Version 1)
Quarter: 2021Q2

REPORT INFORMATION
  Report Type: Spontaneous
  Country: US (occurrence: US)
  Receive Date: 20210628
  Receipt Date: 20210628
  Transmission Date: 20210717
  Serious: No
  Sender: FDA-Public Use
  Company Number: US-JNJFOC-20210649212

PATIENT
  Age: 36 Year
  Sex: Female
  Weight: 49.9 kg

DRUGS (5)
  1. COVID?19 VACCINE [Concomitant]
     Indication: IMMUNISATION
     Dosage: LEFT ARM NEAR SHOULDER
     Route: 065
     Dates: start: 20210530
  2. VICKS VAPORUB [CAMPHOR;EUCALYPTUS GLOBULUS OIL;MENTHOL] [Concomitant]
     Indication: HEADACHE
     Route: 061
  3. VICKS DAYQUIL [Concomitant]
     Active Substance: DEXTROMETHORPHAN HYDROBROMIDE\GUAIFENESIN
     Indication: HEADACHE
     Route: 065
  4. ZYRTEC [Suspect]
     Active Substance: CETIRIZINE HYDROCHLORIDE
     Indication: HYPERSENSITIVITY
     Route: 065
     Dates: start: 20210602
  5. MOTRIN [Concomitant]
     Active Substance: IBUPROFEN
     Indication: HEADACHE
     Route: 065

REACTIONS (2)
  - Product use in unapproved indication [Unknown]
  - Therapeutic response unexpected [Unknown]

NARRATIVE: CASE EVENT DATE: 202106
